FAERS Safety Report 7614132-8 (Version None)
Quarter: 2011Q3

REPORT INFORMATION
  Report Type: 
  Country: None (occurrence: None)
  Receive Date: 20110714
  Receipt Date: 20100630
  Transmission Date: 20111222
  Serious: Yes (Life-Threatening, Other)
  Sender: FDA-Public Use
  Company Number: 2010EK000009

PATIENT
  Age: 66 Year
  Sex: Female
  Weight: 123 kg

DRUGS (4)
  1. LASIX [Concomitant]
  2. BETAPACE [Concomitant]
  3. DEPODUR [Suspect]
     Indication: PROCEDURAL PAIN
     Dosage: 10 MG;X1;ED
     Route: 008
     Dates: start: 20050822, end: 20050822
  4. DILAUDID [Concomitant]

REACTIONS (1)
  - HYPOTENSION [None]
